FAERS Safety Report 11667932 (Version 1)
Quarter: 2015Q4

REPORT INFORMATION
  Report Type: Report from Study
  Country: ES (occurrence: ES)
  Receive Date: 20151027
  Receipt Date: 20151027
  Transmission Date: 20160304
  Serious: Yes (Other)
  Sender: FDA-Public Use
  Company Number: ES-JNJFOC-20150414403

PATIENT

DRUGS (3)
  1. SIMEPREVIR [Suspect]
     Active Substance: SIMEPREVIR
     Indication: HEPATITIS C
     Route: 048
     Dates: start: 201411
  2. SOFOSBUVIR [Suspect]
     Active Substance: SOFOSBUVIR
     Indication: HEPATITIS C
     Route: 065
     Dates: start: 201411
  3. RIBAVIRIN. [Suspect]
     Active Substance: RIBAVIRIN
     Indication: HEPATITIS C
     Route: 065
     Dates: start: 201411

REACTIONS (9)
  - Hyperbilirubinaemia [Unknown]
  - Rectal haemorrhage [Unknown]
  - Pancreatitis [Unknown]
  - Condition aggravated [Unknown]
  - Anaemia [Unknown]
  - Splenic infarction [Unknown]
  - Skin lesion [Unknown]
  - Urinary tract infection [Unknown]
  - Respiratory tract infection [Unknown]
